FAERS Safety Report 8957112 (Version 1)
Quarter: 2012Q4

REPORT INFORMATION
  Report Type: 
  Country: US (occurrence: US)
  Receive Date: 20121211
  Receipt Date: 20121211
  Transmission Date: 20130627
  Serious: Yes (Hospitalization)
  Sender: FDA-Public Use
  Company Number: US-BAYER-2012-129180

PATIENT
  Age: 26 Year
  Sex: Female

DRUGS (14)
  1. OCELLA [Suspect]
  2. YASMIN [Suspect]
  3. CEFTIN [Concomitant]
  4. IBUPROFEN [Concomitant]
     Indication: SCIATICA
  5. PREDNISONE [Concomitant]
     Indication: SCIATICA
  6. SINGULAIR [Concomitant]
  7. ZYRTEC [Concomitant]
  8. MUCINEX [Concomitant]
  9. DIFLUCAN [Concomitant]
  10. LORAZEPAM [Concomitant]
  11. Z-PAK [Concomitant]
     Indication: BRONCHITIS
  12. FLUCONAZOLE [Concomitant]
  13. CEFUROXIME [Concomitant]
  14. AZITHROMYCIN [Concomitant]

REACTIONS (1)
  - Pulmonary embolism [Recovered/Resolved with Sequelae]
